FAERS Safety Report 22111678 (Version 1)
Quarter: 2023Q1

REPORT INFORMATION
  Report Type: Spontaneous
  Country: GB (occurrence: GB)
  Receive Date: 20230318
  Receipt Date: 20230318
  Transmission Date: 20230418
  Serious: Yes (Other)
  Sender: FDA-Public Use
  Company Number: GB-MHRA-ADR 27737126

PATIENT
  Age: 78 Year
  Sex: Female

DRUGS (3)
  1. AMIODARONE [Suspect]
     Active Substance: AMIODARONE
     Indication: Product used for unknown indication
     Dosage: FIRST WEEK: 3 TIMES DAILY 8AM/2PM/8PM WITH FOODSECOND WEEK ^2^: 8AM/8PM THIRD WEEK ^1^: 8PM
     Route: 065
     Dates: start: 20220217, end: 20220325
  2. CARVEDILOL [Concomitant]
     Active Substance: CARVEDILOL
     Indication: Product used for unknown indication
     Dosage: 3.125MG /LATER 6.25MG TWICE DAILY
     Route: 065
  3. RIVAROXABAN [Concomitant]
     Active Substance: RIVAROXABAN
     Indication: Product used for unknown indication
     Dosage: 20 MILLIGRAM, ONCE A DAY
     Route: 065

REACTIONS (7)
  - Blister [Unknown]
  - Skin weeping [Unknown]
  - Wheezing [Unknown]
  - Chills [Unknown]
  - Pain of skin [Unknown]
  - Joint swelling [Unknown]
  - Dyskinesia [Unknown]

NARRATIVE: CASE EVENT DATE: 20230101
